FAERS Safety Report 6074360-2 (Version None)
Quarter: 2009Q1

REPORT INFORMATION
  Report Type: 
  Country: None (occurrence: None)
  Receive Date: 20090211
  Receipt Date: 20090130
  Transmission Date: 20090719
  Serious: Yes (Life-Threatening, Other)
  Sender: FDA-Public Use
  Company Number: JP-PFIZER INC-2009165240

PATIENT

DRUGS (12)
  1. GABAPEN [Suspect]
     Dosage: 1200 MG, 1X/DAY
     Route: 048
     Dates: start: 20080109
  2. HALCION [Suspect]
  3. SOLANAX [Suspect]
  4. BEZATOL - SLOW RELEASE [Suspect]
     Dosage: UNK
     Dates: start: 20090130
  5. STARSIS [Suspect]
     Dosage: UNK
     Dates: start: 20090103
  6. KINEDAK [Suspect]
  7. ANTINEOPLASTIC AGENTS [Concomitant]
  8. MORPHINE [Concomitant]
  9. DRUG, UNSPECIFIED [Concomitant]
  10. MUCOSTA [Concomitant]
  11. DIAZEPAM [Concomitant]
  12. TRYPTANOL [Concomitant]

REACTIONS (1)
  - HYPOTHERMIA [None]
